FAERS Safety Report 10643595 (Version 2)
Quarter: 2015Q1

REPORT INFORMATION
  Report Type: Spontaneous
  Country: IT (occurrence: IT)
  Receive Date: 20141210
  Receipt Date: 20150323
  Transmission Date: 20150720
  Serious: Yes (Hospitalization)
  Sender: FDA-Public Use
  Company Number: IT-B.I. PHARMACEUTICALS,INC./RIDGEFIELD-2014-BI-59029IT

PATIENT
  Age: 37 Year
  Sex: Female

DRUGS (2)
  1. TRUVADA [Concomitant]
     Active Substance: EMTRICITABINE\TENOFOVIR DISOPROXIL FUMARATE
     Indication: ACUTE HIV INFECTION
     Dosage: FORMULATION: FILM-COATED TABLET
     Route: 048
     Dates: start: 20091201, end: 20100704
  2. VIRAMUNE [Suspect]
     Active Substance: NEVIRAPINE
     Indication: ACUTE HIV INFECTION
     Dosage: 400 MG
     Route: 048
     Dates: start: 20100528, end: 20100704

REACTIONS (3)
  - Hyperpyrexia [Recovered/Resolved]
  - Flushing [Recovered/Resolved]
  - Drug-induced liver injury [Recovered/Resolved]

NARRATIVE: CASE EVENT DATE: 20100704
